FAERS Safety Report 19082017 (Version 1)
Quarter: 2021Q1

REPORT INFORMATION
  Report Type: Spontaneous
  Country: US (occurrence: US)
  Receive Date: 20210331
  Receipt Date: 20210331
  Transmission Date: 20210420
  Serious: No
  Sender: FDA-Public Use
  Company Number: None

PATIENT
  Age: 45 Year
  Sex: Female
  Weight: 107.1 kg

DRUGS (9)
  1. LIPITOR 80 MG DAILY [Concomitant]
  2. HYDROCHLOROTHIAZIDE 25 MG DAILY [Concomitant]
  3. ZYRTEC 10 MG DAILY [Concomitant]
  4. PROVENTIL HFA 90 MCG 2 PUFFS EVERY 4?6 HOURS AS NEEDED [Concomitant]
  5. DULAGLUTIDE. [Suspect]
     Active Substance: DULAGLUTIDE
     Indication: TYPE 2 DIABETES MELLITUS
     Dosage: ?          OTHER FREQUENCY:WEEKLY;?
     Route: 058
     Dates: start: 20190424, end: 20200323
  6. MONTELUKAST 10 MG DAILY [Concomitant]
  7. CARVEDILOL 6.25 MG DAILY [Concomitant]
  8. HUMULIN U?500 45 UNITS THREE TIMES DAILY [Concomitant]
  9. METFORMIN ER 750 MG DAILY [Concomitant]

REACTIONS (2)
  - Vomiting [None]
  - Nausea [None]

NARRATIVE: CASE EVENT DATE: 20200123
